FAERS Safety Report 7331137-5 (Version None)
Quarter: 2011Q1

REPORT INFORMATION
  Report Type: 
  Country: None (occurrence: None)
  Receive Date: 20110304
  Receipt Date: 20110218
  Transmission Date: 20110831
  Serious: Yes (Other)
  Sender: FDA-Public Use
  Company Number: US-RANBAXY-2011RR-41370

PATIENT
  Sex: Female

DRUGS (6)
  1. LEVAQUIN [Suspect]
     Indication: BACTERIAL INFECTION
     Route: 048
  2. LEVAQUIN [Suspect]
     Indication: BREAST INFECTION
  3. CIPROFLOXACIN [Suspect]
     Indication: BREAST INFECTION
     Dosage: 500 MG, BID
     Route: 065
  4. LEVAQUIN [Suspect]
     Indication: BRONCHITIS
  5. NIASPAN [Concomitant]
  6. LIPITOR [Concomitant]

REACTIONS (4)
  - ROTATOR CUFF SYNDROME [None]
  - JOINT SWELLING [None]
  - TENDON INJURY [None]
  - TENDON DISORDER [None]
